FAERS Safety Report 21470959 (Version 1)
Quarter: 2022Q4

REPORT INFORMATION
  Report Type: Spontaneous
  Country: US (occurrence: US)
  Receive Date: 20221018
  Receipt Date: 20221018
  Transmission Date: 20230113
  Serious: No
  Sender: FDA-Public Use
  Company Number: US-BRISTOL-MYERS SQUIBB COMPANY-2022-122350

PATIENT
  Age: 49 Year
  Sex: Female

DRUGS (1)
  1. REVLIMID [Suspect]
     Active Substance: LENALIDOMIDE
     Indication: Plasmacytoma
     Dosage: DAYS 1-14 OF EACH 21 DAY CYCLE. TAKE WHOLE WITH WATER AT SAME TIME EACH DAY
     Route: 048
     Dates: start: 20220906

REACTIONS (1)
  - Feeling hot [Not Recovered/Not Resolved]
